FAERS Safety Report 25864612 (Version 1)
Quarter: 2025Q3

REPORT INFORMATION
  Report Type: Spontaneous
  Country: US (occurrence: US)
  Receive Date: 20250930
  Receipt Date: 20250930
  Transmission Date: 20251020
  Serious: No
  Sender: GRIFOLS
  Company Number: US-IGSA-BIG0038171

PATIENT
  Age: 67 Year
  Sex: Male
  Weight: 62.14 kg

DRUGS (23)
  1. GAMUNEX-C [Suspect]
     Active Substance: HUMAN IMMUNOGLOBULIN G
     Indication: Chronic inflammatory demyelinating polyradiculoneuropathy
     Dosage: 60 GRAM, Q.4WK.
     Route: 042
     Dates: start: 20250918
  2. GAMUNEX-C [Suspect]
     Active Substance: HUMAN IMMUNOGLOBULIN G
     Dosage: 80 GRAM, Q.4WK.
     Route: 042
     Dates: start: 202502
  3. GAMUNEX-C [Suspect]
     Active Substance: HUMAN IMMUNOGLOBULIN G
     Dosage: 80 GRAM, Q.4WK.
     Route: 042
     Dates: start: 20241203
  4. BENADRYL [Concomitant]
     Active Substance: DIPHENHYDRAMINE HYDROCHLORIDE
     Indication: Premedication
  5. LEVOTHYROXINE [Concomitant]
     Active Substance: LEVOTHYROXINE
  6. NALTREXONE [Concomitant]
     Active Substance: NALTREXONE
  7. FENUGREEK LEAF\HERBALS [Concomitant]
     Active Substance: FENUGREEK LEAF\HERBALS
  8. METANX [Concomitant]
     Active Substance: LEVOMEFOLATE CALCIUM\METHYLCOBALAMIN\PYRIDOXAL PHOSPHATE ANHYDROUS
  9. CREON [Concomitant]
     Active Substance: PANCRELIPASE AMYLASE\PANCRELIPASE LIPASE\PANCRELIPASE PROTEASE
  10. DIM PLUS [Concomitant]
  11. SELENIUM [Concomitant]
     Active Substance: SELENIUM
  12. GLUCOSAMINE + CHONDORITIN [Concomitant]
  13. SAW PALMETTO [CUCURBITA PEPO OIL;SERENOA REPENS;ZINC GLUCONATE] [Concomitant]
  14. VITAMIN C [Concomitant]
     Active Substance: ASCORBIC ACID
  15. VITAMIN D3 [Concomitant]
     Active Substance: CHOLECALCIFEROL
  16. BERBERINE [Concomitant]
     Active Substance: BERBERINE
  17. COENZYME Q10 [Concomitant]
     Active Substance: DIETARY SUPPLEMENT\UBIDECARENONE
  18. HERBALS\WITHANIA SOMNIFERA ROOT [Concomitant]
     Active Substance: HERBALS\WITHANIA SOMNIFERA ROOT
  19. ZINC [Concomitant]
     Active Substance: ZINC
  20. MAGNESIUM [Concomitant]
     Active Substance: MAGNESIUM
  21. AZITHROMYCIN [Concomitant]
     Active Substance: AZITHROMYCIN
  22. ETHAMBUTOL [Concomitant]
     Active Substance: ETHAMBUTOL HYDROCHLORIDE
  23. POSACONAZOLE [Concomitant]
     Active Substance: POSACONAZOLE

REACTIONS (4)
  - Rash [Recovering/Resolving]
  - Pruritus [Recovering/Resolving]
  - Swelling [Recovered/Resolved]
  - Urticaria [Recovered/Resolved]

NARRATIVE: CASE EVENT DATE: 20250201
